FAERS Safety Report 5173163-0 (Version None)
Quarter: 2006Q4

REPORT INFORMATION
  Report Type: 
  Country: None (occurrence: None)
  Receive Date: 20061207
  Receipt Date: 20061207
  Transmission Date: 20070319
  Serious: Yes (Other)
  Sender: FDA-Public Use
  Company Number: None

PATIENT
  Age: 43 Year
  Sex: Female

DRUGS (1)
  1. ALLERGENIC EXTRACT [Suspect]

REACTIONS (3)
  - MEDICAL DEVICE COMPLICATION [None]
  - MEDICATION ERROR [None]
  - WRONG DRUG ADMINISTERED [None]
